FAERS Safety Report 16648114 (Version 1)
Quarter: 2019Q3

REPORT INFORMATION
  Report Type: Spontaneous
  Country: MK (occurrence: MK)
  Receive Date: 20190730
  Receipt Date: 20190730
  Transmission Date: 20191004
  Serious: Yes (Other)
  Sender: FDA-Public Use
  Company Number: MK-SEBELA IRELAND LIMITED-2019SEB00188

PATIENT
  Age: 52 Year
  Sex: Female

DRUGS (8)
  1. LOSARTAN. [Concomitant]
     Active Substance: LOSARTAN
     Route: 065
  2. ATROPINE. [Suspect]
     Active Substance: ATROPINE
     Dosage: 36 MG, 1X/DAY
     Route: 042
  3. ATROPINE. [Suspect]
     Active Substance: ATROPINE
     Dosage: 11 MG (^FULL ATROPINIZATION^ AFTER 12 MG)
     Route: 042
  4. ATROPINE. [Suspect]
     Active Substance: ATROPINE
     Indication: CHEMICAL POISONING
     Dosage: 1 MG, ONCE
     Route: 042
  5. STATINS [Concomitant]
     Active Substance: UNSPECIFIED INGREDIENT
     Dosage: UNK
     Route: 065
  6. ATROPINE. [Suspect]
     Active Substance: ATROPINE
     Dosage: MAINTENANCE ATROPINE AFTER ^FULL ATROPINIZATION^
     Route: 042
  7. HYDROCHLOROTHIAZIDE. [Concomitant]
     Active Substance: HYDROCHLOROTHIAZIDE
     Route: 065
  8. NIFEDIPINE. [Concomitant]
     Active Substance: NIFEDIPINE
     Route: 065

REACTIONS (1)
  - Pulmonary thrombosis [Recovered/Resolved]
